FAERS Safety Report 8733347 (Version 2)
Quarter: 2012Q4

REPORT INFORMATION
  Report Type: Spontaneous
  Country: GB (occurrence: None)
  Receive Date: 20120801
  Receipt Date: 20120827
  Transmission Date: 20130627
  Serious: Yes (Death)
  Sender: FDA-Public Use
  Company Number: APL-2012-00115

PATIENT
  Age: 53 Year
  Sex: Female

DRUGS (4)
  1. PECFENT [Suspect]
     Indication: PAIN
     Dosage: 100;200 UG, PM
  2. OXYCODONE HYDROCHLORIDE [Concomitant]
  3. FENTANYL [Concomitant]
  4. FENTANYL [Concomitant]

REACTIONS (5)
  - Death [None]
  - Headache [None]
  - Confusional state [None]
  - Malignant neoplasm progression [None]
  - Endometrial cancer metastatic [None]
